FAERS Safety Report 7687497-9 (Version None)
Quarter: 2011Q3

REPORT INFORMATION
  Report Type: 
  Country: None (occurrence: None)
  Receive Date: 20110817
  Receipt Date: 20110809
  Transmission Date: 20111222
  Serious: Yes (Hospitalization)
  Sender: FDA-Public Use
  Company Number: US-BIOGENIDEC-2011BI020531

PATIENT
  Age: 35 Year
  Sex: Female

DRUGS (1)
  1. TYSABRI [Suspect]
     Indication: MULTIPLE SCLEROSIS
     Route: 042
     Dates: start: 20100511

REACTIONS (15)
  - LIVEDO RETICULARIS [None]
  - CHEST PAIN [None]
  - FIBROMYALGIA [None]
  - DIZZINESS [None]
  - URINARY TRACT INFECTION [None]
  - MULTIPLE SCLEROSIS RELAPSE [None]
  - HEMIPARESIS [None]
  - ANXIETY [None]
  - CHILLS [None]
  - DYSPNOEA [None]
  - HYPOAESTHESIA [None]
  - HEADACHE [None]
  - HYPOTHYROIDISM [None]
  - FLUSHING [None]
  - PANIC ATTACK [None]
